FAERS Safety Report 17002710 (Version 1)
Quarter: 2019Q4

REPORT INFORMATION
  Report Type: Spontaneous
  Country: US (occurrence: US)
  Receive Date: 20191107
  Receipt Date: 20191107
  Transmission Date: 20200122
  Serious: Yes (Other)
  Sender: FDA-Public Use
  Company Number: US-SAREPTA THERAPEUTICS INC.-SRP2019-000566

PATIENT
  Age: 18 Year
  Sex: Male

DRUGS (2)
  1. EXONDYS 51 [Suspect]
     Active Substance: ETEPLIRSEN
     Indication: DUCHENNE MUSCULAR DYSTROPHY
     Dosage: (500 MG/10ML) 2700 MG, WEEKLY
     Route: 042
     Dates: start: 201803
  2. EXONDYS 51 [Suspect]
     Active Substance: ETEPLIRSEN
     Dosage: (100 MG/2ML) 2700 MG, WEEKLY
     Route: 042
     Dates: start: 201803

REACTIONS (2)
  - Ill-defined disorder [Unknown]
  - Product dose omission [Unknown]

NARRATIVE: CASE EVENT DATE: 20191007
